FAERS Safety Report 17499146 (Version 2)
Quarter: 2020Q3

REPORT INFORMATION
  Report Type: Spontaneous
  Country: US (occurrence: US)
  Receive Date: 20200304
  Receipt Date: 20200702
  Transmission Date: 20201102
  Serious: Yes (Hospitalization)
  Sender: FDA-Public Use
  Company Number: US-009507513-2002USA011149

PATIENT
  Age: 59 Year
  Sex: Female

DRUGS (2)
  1. PREVYMIS [Suspect]
     Active Substance: LETERMOVIR
     Indication: PROPHYLAXIS
     Dosage: 480 MILLIGRAM, DAILY
     Route: 048
     Dates: end: 2020
  2. PREVYMIS [Suspect]
     Active Substance: LETERMOVIR
     Indication: PROPHYLAXIS
     Dosage: 480 MILLIGRAM, DAILY
     Route: 042

REACTIONS (5)
  - Cytomegalovirus test positive [Unknown]
  - Gastrointestinal tube insertion [Unknown]
  - Product dose omission issue [Unknown]
  - Product availability issue [Unknown]
  - Post procedural complication [Recovering/Resolving]

NARRATIVE: CASE EVENT DATE: 2020
